FAERS Safety Report 22284899 (Version 1)
Quarter: 2023Q2

REPORT INFORMATION
  Report Type: Spontaneous
  Country: US (occurrence: None)
  Receive Date: 20230503
  Receipt Date: 20230503
  Transmission Date: 20230721
  Serious: No
  Sender: FDA-Public Use
  Company Number: None

PATIENT
  Sex: 0

DRUGS (1)
  1. ARMOUR THYROID [Suspect]
     Active Substance: THYROID, PORCINE

REACTIONS (6)
  - Memory impairment [None]
  - Weight decreased [None]
  - Pain [None]
  - Pruritus [None]
  - Decreased appetite [None]
  - Depression [None]
